FAERS Safety Report 22060663 (Version 2)
Quarter: 2023Q1

REPORT INFORMATION
  Report Type: Spontaneous
  Country: US (occurrence: US)
  Receive Date: 20230303
  Receipt Date: 20230323
  Transmission Date: 20230418
  Serious: No
  Sender: FDA-Public Use
  Company Number: US-DSJP-DSU-2023-107919AA

PATIENT
  Age: 63 Year
  Sex: Female

DRUGS (2)
  1. ENHERTU [Suspect]
     Active Substance: FAM-TRASTUZUMAB DERUXTECAN-NXKI
     Indication: HER2 negative breast cancer
     Dosage: UNK
     Route: 065
     Dates: start: 2022
  2. ENHERTU [Suspect]
     Active Substance: FAM-TRASTUZUMAB DERUXTECAN-NXKI
     Indication: Breast cancer metastatic

REACTIONS (7)
  - Migraine [Unknown]
  - Unevaluable event [Unknown]
  - Metastases to meninges [Unknown]
  - Adverse drug reaction [Unknown]
  - Neuropathy peripheral [Unknown]
  - Fatigue [Unknown]
  - Memory impairment [Unknown]
